FAERS Safety Report 6649587-9 (Version None)
Quarter: 2010Q2

REPORT INFORMATION
  Report Type: 
  Country: None (occurrence: None)
  Receive Date: 20100324
  Receipt Date: 20100324
  Transmission Date: 20101027
  Serious: Yes (Other)
  Sender: FDA-Public Use
  Company Number: None

PATIENT
  Age: 21 Year
  Sex: Female
  Weight: 61.2356 kg

DRUGS (1)
  1. VALTREX [Suspect]
     Indication: HERPES VIRUS INFECTION
     Dosage: 500MG DAILY PO 1G DAILY AND DOUBLED PO
     Route: 048
     Dates: start: 20060401, end: 20070901

REACTIONS (4)
  - MENORRHAGIA [None]
  - MUSCLE SPASMS [None]
  - NO THERAPEUTIC RESPONSE [None]
  - VAGINAL HAEMORRHAGE [None]
